FAERS Safety Report 17072114 (Version 1)
Quarter: 2019Q4

REPORT INFORMATION
  Report Type: Spontaneous
  Country: US (occurrence: US)
  Receive Date: 20191125
  Receipt Date: 20191125
  Transmission Date: 20200122
  Serious: Yes (Other)
  Sender: FDA-Public Use
  Company Number: US-AKORN PHARMACEUTICALS-2019AKN02279

PATIENT
  Age: 20 Year
  Sex: Female
  Weight: 54.42 kg

DRUGS (2)
  1. MYORISAN [Suspect]
     Active Substance: ISOTRETINOIN
     Indication: ACNE CYSTIC
     Dosage: 20 MG, 2X/DAY
     Route: 048
     Dates: start: 20190822, end: 201909
  2. MYORISAN [Suspect]
     Active Substance: ISOTRETINOIN
     Dosage: 20 MG, 1X/DAY WITH FOOD
     Route: 048
     Dates: start: 20190924, end: 2019

REACTIONS (3)
  - Depression [Recovered/Resolved]
  - Off label use [Recovered/Resolved]
  - Anxiety [Recovered/Resolved]

NARRATIVE: CASE EVENT DATE: 2019
